FAERS Safety Report 5677289-4 (Version None)
Quarter: 2008Q1

REPORT INFORMATION
  Report Type: 
  Country: None (occurrence: None)
  Receive Date: 20080324
  Receipt Date: 20080313
  Transmission Date: 20080703
  Serious: Yes (Other)
  Sender: FDA-Public Use
  Company Number: US-JNJFOC-20080303653

PATIENT
  Age: 13 Year
  Sex: Female

DRUGS (1)
  1. REMICADE [Suspect]
     Indication: CROHN'S DISEASE
     Dosage: 31 INFUSIONS RECEIVED IN PAST 4 YEARS, DATES UNSPECIFIED, FREQUENCY EVERY 6 WEEKS
     Route: 042

REACTIONS (5)
  - ARTHRALGIA [None]
  - CHEST PAIN [None]
  - DYSPNOEA [None]
  - RASH [None]
  - STAPHYLOCOCCAL INFECTION [None]
